FAERS Safety Report 8549639-2 (Version None)
Quarter: 2012Q3

REPORT INFORMATION
  Report Type: 
  Country: None (occurrence: None)
  Receive Date: 20120719
  Receipt Date: 20120326
  Transmission Date: 20120928
  Serious: Yes (Other)
  Sender: FDA-Public Use
  Company Number: 2012000067

PATIENT
  Age: 68 Year
  Sex: Female

DRUGS (4)
  1. ACEON [Suspect]
     Indication: HYPERTENSION
     Dosage: 5 MG, BID, ORAL
     Route: 048
     Dates: start: 20050101
  2. INDAPAMIDE [Concomitant]
  3. CAPOTEN [Concomitant]
  4. DILTIAZEM [Concomitant]

REACTIONS (2)
  - BLOOD PRESSURE INCREASED [None]
  - DRUG INEFFECTIVE [None]
